FAERS Safety Report 24784041 (Version 1)
Quarter: 2024Q4

REPORT INFORMATION
  Report Type: Spontaneous
  Country: GB (occurrence: GB)
  Receive Date: 20241227
  Receipt Date: 20241227
  Transmission Date: 20250115
  Serious: Yes (Other)
  Sender: TAKEDA
  Company Number: None

PATIENT
  Age: 83 Year
  Sex: Male
  Weight: 93 kg

DRUGS (6)
  1. ENTYVIO [Suspect]
     Active Substance: VEDOLIZUMAB
     Indication: Adverse drug reaction
     Dosage: UNK
     Dates: start: 20220818, end: 20230727
  2. ENTYVIO [Suspect]
     Active Substance: VEDOLIZUMAB
     Indication: Adverse drug reaction
     Dosage: UNK
  3. ENTYVIO [Suspect]
     Active Substance: VEDOLIZUMAB
  4. ENTYVIO [Suspect]
     Active Substance: VEDOLIZUMAB
  5. ENTYVIO [Suspect]
     Active Substance: VEDOLIZUMAB
  6. PENTASA [Concomitant]
     Active Substance: MESALAMINE
     Indication: Colitis ulcerative
     Dosage: UNK

REACTIONS (2)
  - Head discomfort [Not Recovered/Not Resolved]
  - Drooling [Unknown]

NARRATIVE: CASE EVENT DATE: 20220818
